FAERS Safety Report 6756091-6 (Version None)
Quarter: 2010Q2

REPORT INFORMATION
  Report Type: 
  Country: None (occurrence: None)
  Receive Date: 20100604
  Receipt Date: 20100526
  Transmission Date: 20101027
  Serious: Yes (Hospitalization, Other)
  Sender: FDA-Public Use
  Company Number: US-PFIZER INC-2008078602

PATIENT
  Sex: Male
  Weight: 131.5 kg

DRUGS (1)
  1. LIPITOR [Suspect]
     Indication: BLOOD CHOLESTEROL INCREASED
     Dosage: 80 MG, DAILY
     Route: 048
     Dates: start: 20010101

REACTIONS (12)
  - BACK PAIN [None]
  - BODY HEIGHT DECREASED [None]
  - CARDIOMYOPATHY [None]
  - DYSPNOEA [None]
  - EPISTAXIS [None]
  - INSOMNIA [None]
  - MUSCLE INJURY [None]
  - MYOPATHY [None]
  - OEDEMA PERIPHERAL [None]
  - PAIN [None]
  - RENAL FAILURE [None]
  - VOMITING [None]
